FAERS Safety Report 5250779-4 (Version None)
Quarter: 2007Q1

REPORT INFORMATION
  Report Type: 
  Country: None (occurrence: None)
  Receive Date: 20070228
  Receipt Date: 20070227
  Transmission Date: 20070707
  Serious: Yes (Other)
  Sender: FDA-Public Use
  Company Number: US-GLAXOSMITHKLINE-A0640895A

PATIENT
  Age: 86 Year
  Sex: Female

DRUGS (5)
  1. DEBROX DROPS [Suspect]
     Route: 001
     Dates: start: 20070223, end: 20070224
  2. COUMADIN [Concomitant]
  3. FLUOXETINE HCL [Concomitant]
  4. SULAR [Concomitant]
  5. ATENOLOL AND CHLORTHALIDONE [Concomitant]

REACTIONS (2)
  - DEAFNESS [None]
  - FEAR [None]
